FAERS Safety Report 5853298-7 (Version None)
Quarter: 2008Q3

REPORT INFORMATION
  Report Type: 
  Country: None (occurrence: None)
  Receive Date: 20080821
  Receipt Date: 20080811
  Transmission Date: 20090109
  Serious: Yes (Hospitalization, Other)
  Sender: FDA-Public Use
  Company Number: US-PFIZER INC-2008064318

PATIENT
  Age: 10 Year
  Sex: Male

DRUGS (13)
  1. PREDNISONE TAB [Suspect]
     Indication: ASTHMA
     Dosage: DAILY DOSE:60MG
     Route: 048
  2. PREDNISONE TAB [Suspect]
     Dosage: DAILY DOSE:40MG
     Route: 048
  3. METHYLPREDNISOLONE [Suspect]
     Indication: ASTHMA
     Route: 042
  4. METHYLPREDNISOLONE [Suspect]
     Dosage: DAILY DOSE:120MG
  5. BECLOMETHASONE DIPROPIONATE [Suspect]
     Indication: ASTHMA
  6. DEXAMETHASONE TAB [Suspect]
     Indication: ASTHMA
  7. CLARITHROMYCIN [Concomitant]
  8. SERTRALINE [Concomitant]
     Indication: MAJOR DEPRESSION
     Dosage: DAILY DOSE:25MG
     Route: 048
  9. SERTRALINE [Concomitant]
     Indication: ANXIETY
  10. THEOPHYLLINE [Concomitant]
     Indication: ASTHMA
  11. SALMETEROL [Concomitant]
  12. ALBUTEROL [Concomitant]
  13. CROMOLYN SODIUM [Concomitant]

REACTIONS (10)
  - AGITATION [None]
  - CUSHINGOID [None]
  - DEMENTIA [None]
  - HALLUCINATION, AUDITORY [None]
  - HALLUCINATION, VISUAL [None]
  - INSOMNIA [None]
  - MAJOR DEPRESSION [None]
  - MYOPATHY [None]
  - NEUROTOXICITY [None]
  - NIGHTMARE [None]
